FAERS Safety Report 7807964-4 (Version None)
Quarter: 2011Q4

REPORT INFORMATION
  Report Type: 
  Country: None (occurrence: None)
  Receive Date: 20111011
  Receipt Date: 20111011
  Transmission Date: 20120403
  Serious: Yes (Life-Threatening, Other)
  Sender: FDA-Public Use
  Company Number: None

PATIENT
  Age: 43 Year
  Sex: Female
  Weight: 106.59 kg

DRUGS (2)
  1. VENLAFAXINE GENERIC [Suspect]
     Indication: GENERALISED ANXIETY DISORDER
     Dosage: 2 X 150
     Route: 048
  2. VENLAFAXINE GENERIC [Suspect]
     Indication: MAJOR DEPRESSION
     Dosage: 2 X 150
     Route: 048

REACTIONS (4)
  - PRODUCT SUBSTITUTION ISSUE [None]
  - HALLUCINATION [None]
  - ABNORMAL DREAMS [None]
  - SUICIDAL IDEATION [None]
